FAERS Safety Report 15641803 (Version 8)
Quarter: 2020Q3

REPORT INFORMATION
  Report Type: Other
  Country: AT (occurrence: AT)
  Receive Date: 20181121
  Receipt Date: 20200821
  Transmission Date: 20201104
  Serious: Yes (Other)
  Sender: FDA-Public Use
  Company Number: AT-ROCHE-2216148

PATIENT
  Age: 79 Year
  Sex: Female
  Weight: 99 kg

DRUGS (10)
  1. APREDNISLON [Concomitant]
     Active Substance: PREDNISOLONE
     Indication: IMMUNOSUPPRESSION
     Route: 048
     Dates: start: 20180703, end: 20180806
  2. CANDESARTAN CILEXETIL AND HYDROCHLOROTHIAZIDE [Concomitant]
     Active Substance: CANDESARTAN CILEXETIL\HYDROCHLOROTHIAZIDE
     Indication: HYPERTENSION
     Dosage: DOSE: 16/12.5 MG
     Route: 048
     Dates: start: 20180703, end: 20180806
  3. KREON [Concomitant]
     Active Substance: PANCRELIPASE
     Route: 048
     Dates: start: 20180703, end: 20180806
  4. RITUXIMAB. [Suspect]
     Active Substance: RITUXIMAB
     Indication: ACQUIRED HAEMOPHILIA
     Route: 065
     Dates: start: 20180727
  5. EMICIZUMAB. [Suspect]
     Active Substance: EMICIZUMAB
     Route: 058
  6. EMICIZUMAB. [Suspect]
     Active Substance: EMICIZUMAB
     Indication: ACQUIRED HAEMOPHILIA
     Dosage: DOSE: 150 ? 180 MG  ONCE A WEEK FOR 4 CONSECUTIVE WEEKS, FOLLOWED BY 1.5 MG/KG WEEKLY
     Route: 058
     Dates: start: 20180706, end: 20180828
  7. NOVOSEVEN [Suspect]
     Active Substance: COAGULATION FACTOR VIIA RECOMBINANT HUMAN
     Indication: ACQUIRED HAEMOPHILIA
     Dosage: RESPECTIVELY IF NEEDED
     Route: 042
     Dates: start: 20180703, end: 20180722
  8. LASIX [Concomitant]
     Active Substance: FUROSEMIDE
     Route: 048
     Dates: start: 20180703, end: 20180806
  9. FEIBA [Concomitant]
     Active Substance: ANTI-INHIBITOR COAGULANT COMPLEX
     Indication: HAEMORRHAGE
     Dosage: 3/DAY
     Route: 065
     Dates: start: 20180629
  10. PANTOLOC [Concomitant]
     Active Substance: PANTOPRAZOLE SODIUM
     Indication: PROPHYLAXIS
     Route: 048
     Dates: start: 20180703, end: 20180806

REACTIONS (4)
  - Haematoma [Unknown]
  - Cerebral artery embolism [Recovered/Resolved]
  - Off label use [Unknown]
  - Intentional product use issue [Unknown]

NARRATIVE: CASE EVENT DATE: 20180708
